FAERS Safety Report 4596761-1 (Version None)
Quarter: 2005Q1

REPORT INFORMATION
  Report Type: 
  Country: None (occurrence: None)
  Receive Date: 20050228
  Receipt Date: 20050215
  Transmission Date: 20050727
  Serious: Yes (Other)
  Sender: FDA-Public Use
  Company Number: 2005028429

PATIENT
  Age: 45 Year
  Sex: Female

DRUGS (1)
  1. ZOLOFT [Suspect]
     Indication: DEPRESSION

REACTIONS (11)
  - DEATH OF CHILD [None]
  - ECONOMIC PROBLEM [None]
  - FAMILY STRESS [None]
  - ILL-DEFINED DISORDER [None]
  - INTENTIONAL SELF-INJURY [None]
  - LOSS OF EMPLOYMENT [None]
  - MURDER [None]
  - PHYSICAL ASSAULT [None]
  - RELATIONSHIP BREAKDOWN [None]
  - ROAD TRAFFIC ACCIDENT [None]
  - SUICIDE ATTEMPT [None]
